FAERS Safety Report 13717027 (Version 2)
Quarter: 2017Q3

REPORT INFORMATION
  Report Type: Report from Study
  Country: JP (occurrence: JP)
  Receive Date: 20170705
  Receipt Date: 20170710
  Transmission Date: 20171127
  Serious: Yes (Hospitalization)
  Sender: FDA-Public Use
  Company Number: JP-ELI_LILLY_AND_COMPANY-JP201705011866

PATIENT
  Age: 85 Year
  Sex: Female

DRUGS (3)
  1. LIPLE [Concomitant]
     Active Substance: ALPROSTADIL
     Route: 065
  2. TERIPARATIDE [Suspect]
     Active Substance: TERIPARATIDE
     Indication: PRODUCT USED FOR UNKNOWN INDICATION
     Dosage: UNK
     Route: 058
     Dates: start: 20170531, end: 20170611
  3. LYRICA [Concomitant]
     Active Substance: PREGABALIN
     Indication: NEURALGIA
     Dosage: UNK
     Route: 048
     Dates: start: 201601

REACTIONS (3)
  - Headache [Unknown]
  - Sciatica [Not Recovered/Not Resolved]
  - Purulence [Unknown]

NARRATIVE: CASE EVENT DATE: 20170611
